FAERS Safety Report 13124033 (Version 1)
Quarter: 2017Q1

REPORT INFORMATION
  Report Type: Spontaneous
  Country: US (occurrence: US)
  Receive Date: 20170118
  Receipt Date: 20170118
  Transmission Date: 20170428
  Serious: Yes (Other)
  Sender: FDA-Public Use
  Company Number: US-ASTRAZENECA-2017SE03316

PATIENT

DRUGS (2)
  1. PALBOCICLIB [Concomitant]
     Active Substance: PALBOCICLIB
  2. ANASTRAZOLE [Suspect]
     Active Substance: ANASTROZOLE
     Route: 048

REACTIONS (1)
  - Disease progression [Unknown]
